FAERS Safety Report 5888588-5 (Version None)
Quarter: 2008Q3

REPORT INFORMATION
  Report Type: 
  Country: None (occurrence: None)
  Receive Date: 20080916
  Receipt Date: 20080904
  Transmission Date: 20090109
  Serious: Yes (Hospitalization)
  Sender: FDA-Public Use
  Company Number: 2008AL010378

PATIENT
  Age: 60 Year
  Sex: Female

DRUGS (9)
  1. CITALOPRAM HYDROBROMIDE [Suspect]
     Indication: DEPRESSION
     Dosage: PO
     Route: 048
     Dates: start: 20070306
  2. ACETAMINOPHEN W/ CODEINE [Suspect]
     Indication: FIBROMYALGIA
     Dosage: PO
     Route: 048
     Dates: start: 20070306
  3. DICLOFENAC SODIUM [Suspect]
     Indication: FIBROMYALGIA
     Dosage: PO
     Route: 048
     Dates: start: 20061218, end: 20080801
  4. ATORVASTATIN CALCIUM [Concomitant]
  5. NEBIVOLOL HCL [Concomitant]
  6. LANSOPRAZOLE [Concomitant]
  7. METOCLOPRAMIDE [Concomitant]
  8. POTASSIUM CHLORIDE [Concomitant]
  9. ASPIRIN [Concomitant]

REACTIONS (5)
  - ALANINE AMINOTRANSFERASE INCREASED [None]
  - BLOOD ALBUMIN INCREASED [None]
  - BLOOD ALKALINE PHOSPHATASE INCREASED [None]
  - BLOOD BILIRUBIN INCREASED [None]
  - GAMMA-GLUTAMYLTRANSFERASE INCREASED [None]
